FAERS Safety Report 18700698 (Version 1)
Quarter: 2021Q1

REPORT INFORMATION
  Report Type: Spontaneous
  Country: US (occurrence: US)
  Receive Date: 20210104
  Receipt Date: 20210104
  Transmission Date: 20210419
  Serious: Yes (Death, Life-Threatening, Hospitalization)
  Sender: FDA-Public Use
  Company Number: None

PATIENT
  Age: 71 Year
  Sex: Male
  Weight: 107.8 kg

DRUGS (5)
  1. OBINUTUZUMAB, 1000MG [Suspect]
     Active Substance: OBINUTUZUMAB
     Indication: CENTRAL NERVOUS SYSTEM LYMPHOMA
     Dosage: ?          OTHER FREQUENCY:EVERY 2 MOS.;?
     Route: 042
     Dates: start: 20190312, end: 20201226
  2. ALTEPLASE. [Concomitant]
     Active Substance: ALTEPLASE
     Dates: start: 20191111
  3. LIDOCAINE/PRILOCAINE [Concomitant]
     Active Substance: LIDOCAINE\PRILOCAINE
  4. ASCORBIC ACID. [Concomitant]
     Active Substance: ASCORBIC ACID
     Dates: start: 20190708
  5. PREDNISOLONE ACET/GATIFLOXACIN [Concomitant]

REACTIONS (7)
  - Sputum discoloured [None]
  - Unresponsive to stimuli [None]
  - Dyspnoea [None]
  - SARS-CoV-2 test positive [None]
  - Productive cough [None]
  - Pneumonia [None]
  - Acute respiratory distress syndrome [None]

NARRATIVE: CASE EVENT DATE: 20201204
